FAERS Safety Report 5567883-3 (Version None)
Quarter: 2007Q4

REPORT INFORMATION
  Report Type: 
  Country: None (occurrence: None)
  Receive Date: 20071218
  Receipt Date: 20071207
  Transmission Date: 20080405
  Serious: Yes (Other)
  Sender: FDA-Public Use
  Company Number: 2007SP024701

PATIENT
  Sex: Female

DRUGS (2)
  1. DR. SCHOLL'S LIQUID CORN /  CALLUS REMOVER (17 PCT) [Suspect]
     Indication: DRUG USE FOR UNKNOWN INDICATION
     Dosage: TOP
  2. EPSOM SALT [Suspect]
     Indication: DRUG USE FOR UNKNOWN INDICATION

REACTIONS (2)
  - CELLULITIS STREPTOCOCCAL [None]
  - ULCER [None]
